FAERS Safety Report 6624842-7 (Version None)
Quarter: 2010Q1

REPORT INFORMATION
  Report Type: 
  Country: None (occurrence: None)
  Receive Date: 20100305
  Receipt Date: 20100223
  Transmission Date: 20100710
  Serious: No
  Sender: FDA-Public Use
  Company Number: 08-183

PATIENT
  Sex: Female

DRUGS (1)
  1. FAZACLO ODT [Suspect]
     Dosage: 100MG-200MG PO DAILY
     Route: 048
     Dates: start: 20050926

REACTIONS (1)
  - DEATH [None]
